FAERS Safety Report 25552993 (Version 2)
Quarter: 2025Q3

REPORT INFORMATION
  Report Type: Spontaneous
  Country: BR (occurrence: BR)
  Receive Date: 20250715
  Receipt Date: 20250822
  Transmission Date: 20251020
  Serious: Yes (Death, Hospitalization, Other)
  Sender: ROCHE
  Company Number: BR-ROCHE-10000335349

PATIENT
  Age: 97 Year
  Sex: Male

DRUGS (1)
  1. ALECENSA [Suspect]
     Active Substance: ALECTINIB HYDROCHLORIDE
     Indication: Lung neoplasm malignant
     Route: 065
     Dates: start: 20250519, end: 20250623

REACTIONS (7)
  - Constipation [Not Recovered/Not Resolved]
  - Fatigue [Unknown]
  - Discouragement [Unknown]
  - Pneumonia [Unknown]
  - Cardiac failure [Unknown]
  - Aphthous ulcer [Unknown]
  - Death [Fatal]
